FAERS Safety Report 6790643-2 (Version None)
Quarter: 2010Q2

REPORT INFORMATION
  Report Type: 
  Country: None (occurrence: None)
  Receive Date: 20100520
  Receipt Date: 20090331
  Transmission Date: 20101027
  Serious: Yes (Other)
  Sender: FDA-Public Use
  Company Number: 2009191617

PATIENT
  Age: 66 Year
  Sex: Female

DRUGS (5)
  1. PROVERA [Suspect]
     Indication: MENOPAUSE
     Dates: start: 19860101, end: 19970129
  2. PREMARIN [Suspect]
     Indication: MENOPAUSE
     Dates: start: 19860101, end: 20030410
  3. PREMPRO [Suspect]
     Indication: MENOPAUSE
     Dates: start: 19970129, end: 20021004
  4. PROMETRIUM [Suspect]
     Indication: MENOPAUSE
     Dates: start: 20021004, end: 20040701
  5. ESTRADIOL [Suspect]
     Indication: MENOPAUSE
     Dates: start: 20040427, end: 20040701

REACTIONS (1)
  - BREAST CANCER FEMALE [None]
